FAERS Safety Report 16863106 (Version 6)
Quarter: 2021Q1

REPORT INFORMATION
  Report Type: Spontaneous
  Country: US (occurrence: US)
  Receive Date: 20190927
  Receipt Date: 20210126
  Transmission Date: 20210419
  Serious: Yes (Other)
  Sender: FDA-Public Use
  Company Number: US-PFIZER INC-2019347611

PATIENT
  Age: 56 Year
  Sex: Female
  Weight: 71.67 kg

DRUGS (2)
  1. LYRICA [Suspect]
     Active Substance: PREGABALIN
     Indication: PAIN IN EXTREMITY
  2. LYRICA [Suspect]
     Active Substance: PREGABALIN
     Indication: TORTICOLLIS
     Dosage: 200 MG, 1X/DAY
     Route: 048

REACTIONS (6)
  - Rheumatoid arthritis [Unknown]
  - Antinuclear antibody positive [Unknown]
  - Confusional state [Unknown]
  - Frustration tolerance decreased [Unknown]
  - Neuralgia [Unknown]
  - Dystonia [Unknown]
